FAERS Safety Report 8167646-9 (Version None)
Quarter: 2012Q1

REPORT INFORMATION
  Report Type: 
  Country: None (occurrence: None)
  Receive Date: 20120227
  Receipt Date: 20120220
  Transmission Date: 20120608
  Serious: Yes (Death)
  Sender: FDA-Public Use
  Company Number: GB-ROCHE-1014730

PATIENT
  Sex: Male

DRUGS (11)
  1. SIMVASTATIN [Concomitant]
  2. BUMETANIDE [Concomitant]
  3. ACETAMINOPHEN [Concomitant]
  4. SOTALOL HCL [Concomitant]
  5. LUCENTIS [Suspect]
     Indication: CHOROIDAL NEOVASCULARISATION
     Route: 050
     Dates: start: 20090820
  6. DEXAMETHASONE [Concomitant]
     Dates: start: 20100309
  7. PERINDOPRIL [Concomitant]
  8. PERINDOPRIL ERBUMINE [Concomitant]
  9. ASPIRIN [Concomitant]
  10. DIGOXIN [Concomitant]
  11. OMEPRAZOLE [Concomitant]

REACTIONS (1)
  - DEATH [None]
